FAERS Safety Report 4727221-2 (Version None)
Quarter: 2005Q3

REPORT INFORMATION
  Report Type: 
  Country: None (occurrence: None)
  Receive Date: 20050726
  Receipt Date: 20050726
  Transmission Date: 20060218
  Serious: Yes (Life-Threatening, Hospitalization)
  Sender: FDA-Public Use
  Company Number: None

PATIENT
  Age: 65 Year
  Sex: Male
  Weight: 139.4 kg

DRUGS (23)
  1. GATIFLOXACIN [Suspect]
  2. CALCIUM 600MG/VITAMIN D [Concomitant]
  3. OMEPRAZOLE [Concomitant]
  4. FOLIC ACID [Concomitant]
  5. INSULIN NPH-100 INJ (HUMAN) [Concomitant]
  6. CARVEDILOL [Concomitant]
  7. LISINOPRIL [Concomitant]
  8. NITROGLYCERIN [Concomitant]
  9. GABAPENTIN [Concomitant]
  10. TRAZODONE HCL [Concomitant]
  11. BUMETANIDE [Concomitant]
  12. WARFARIN SODIUM [Concomitant]
  13. INSULIN REGULAR U-100 INJ (HUMAN) [Concomitant]
  14. MYCOPHENOLATE MOFETIL [Concomitant]
  15. FLUNISOLIDE *NASALIDE* [Concomitant]
  16. ACETAMINOPHEN [Concomitant]
  17. GLYBURIDE [Concomitant]
  18. POTASSIUM CHLORIDE [Concomitant]
  19. PREDNISONE [Concomitant]
  20. TRAMADOL [Concomitant]
  21. LORATADINE [Concomitant]
  22. LEVOTHYROXINE [Concomitant]
  23. MECLIZINE [Concomitant]

REACTIONS (1)
  - HYPOGLYCAEMIA [None]
